FAERS Safety Report 25500065 (Version 1)
Quarter: 2025Q2

REPORT INFORMATION
  Report Type: Spontaneous
  Country: TN (occurrence: None)
  Receive Date: 20250628
  Receipt Date: 20250628
  Transmission Date: 20250717
  Serious: Yes (Life-Threatening, Other)
  Sender: FDA-CTU
  Company Number: None

PATIENT
  Age: 28 Year
  Sex: Female
  Weight: 52 kg

DRUGS (1)
  1. EFFEXOR XR [Suspect]
     Active Substance: VENLAFAXINE HYDROCHLORIDE

REACTIONS (17)
  - Suicidal ideation [None]
  - Brain fog [None]
  - Flat affect [None]
  - Intrusive thoughts [None]
  - Panic attack [None]
  - Weight decreased [None]
  - Poor quality sleep [None]
  - Negative thoughts [None]
  - Mood swings [None]
  - Emotional disorder [None]
  - Myalgia [None]
  - Memory impairment [None]
  - Crying [None]
  - Depersonalisation/derealisation disorder [None]
  - Derealisation [None]
  - Eye disorder [None]
  - Fatigue [None]

NARRATIVE: CASE EVENT DATE: 20240917
